FAERS Safety Report 9365915 (Version 1)
Quarter: 2013Q2

REPORT INFORMATION
  Report Type: Other
  Country: DK (occurrence: TR)
  Receive Date: 20130625
  Receipt Date: 20130625
  Transmission Date: 20140414
  Serious: Yes (Hospitalization)
  Sender: FDA-Public Use
  Company Number: TR-FRI-1000046089

PATIENT
  Age: 32 Year
  Sex: Female

DRUGS (2)
  1. ESCITALOPRAM [Suspect]
     Dosage: 20 MG
  2. CARBAMAZEPINE [Concomitant]
     Indication: EPILEPSY
     Dosage: 100 MG

REACTIONS (1)
  - Bipolar disorder [Not Recovered/Not Resolved]
